FAERS Safety Report 12557316 (Version 1)
Quarter: 2016Q3

REPORT INFORMATION
  Report Type: Spontaneous
  Country: US (occurrence: US)
  Receive Date: 20160714
  Receipt Date: 20160714
  Transmission Date: 20161109
  Serious: No
  Sender: FDA-Public Use
  Company Number: US-MANNKIND CORPORATION-2016MK000296

PATIENT
  Age: 60 Year
  Sex: Male
  Weight: 65.83 kg

DRUGS (4)
  1. AFREZZA [Suspect]
     Active Substance: INSULIN HUMAN
     Indication: TYPE 2 DIABETES MELLITUS
     Dosage: 20-24 UNITS
     Dates: start: 201512
  2. AFREZZA [Suspect]
     Active Substance: INSULIN HUMAN
     Dates: start: 201512, end: 20160607
  3. AFREZZA [Suspect]
     Active Substance: INSULIN HUMAN
     Dates: start: 20160608
  4. GLYBURIDE. [Concomitant]
     Active Substance: GLYBURIDE
     Indication: TYPE 2 DIABETES MELLITUS
     Route: 048

REACTIONS (3)
  - Stress [Unknown]
  - Blood glucose increased [Unknown]
  - Fatigue [Unknown]

NARRATIVE: CASE EVENT DATE: 201605
